FAERS Safety Report 9397378 (Version 3)
Quarter: 2013Q3

REPORT INFORMATION
  Report Type: Spontaneous
  Country: US (occurrence: US)
  Receive Date: 20130712
  Receipt Date: 20130911
  Transmission Date: 20140515
  Serious: Yes (Other)
  Sender: FDA-Public Use
  Company Number: US-009507513-1307USA004743

PATIENT
  Age: 58 Year
  Sex: Female

DRUGS (4)
  1. FOSAMAX [Suspect]
     Indication: OSTEOPOROSIS
     Dosage: UNK
     Route: 048
     Dates: start: 1998, end: 2003
  2. IBANDRONATE SODIUM [Suspect]
     Dosage: UNK
     Dates: start: 2006, end: 2008
  3. ZOLEDRONIC ACID [Suspect]
     Dosage: 5 MG
     Route: 042
     Dates: start: 200905
  4. TERIPARATIDE [Suspect]
     Dosage: UNK
     Dates: start: 2003, end: 2005

REACTIONS (4)
  - Hip fracture [Unknown]
  - Femur fracture [Unknown]
  - Pelvic fracture [Unknown]
  - Surgery [Unknown]
